FAERS Safety Report 8975989 (Version 2)
Quarter: 2013Q1

REPORT INFORMATION
  Report Type: Report from Study
  Country: ES (occurrence: ES)
  Receive Date: 20121219
  Receipt Date: 20130116
  Transmission Date: 20140127
  Serious: Yes (Hospitalization)
  Sender: FDA-Public Use
  Company Number: ES-GLAXOSMITHKLINE-B0853792A

PATIENT
  Age: 38 Year
  Sex: Female
  Weight: 61 kg

DRUGS (5)
  1. OFATUMUMAB [Suspect]
     Indication: HODGKIN^S DISEASE
     Dosage: 1000MG PER DAY
     Dates: start: 20121203, end: 20121203
  2. ETOPOSIDE [Suspect]
     Indication: HODGKIN^S DISEASE
     Dosage: 67MG PER DAY
     Dates: start: 20121204, end: 20121206
  3. CISPLATIN [Suspect]
     Indication: HODGKIN^S DISEASE
     Dosage: 42MG PER DAY
     Dates: start: 20121204, end: 20121206
  4. CYTARABINE [Suspect]
     Indication: HODGKIN^S DISEASE
     Dosage: 3950MG PER DAY
     Dates: start: 20121208, end: 20121208
  5. METHYLPREDNISOLONE [Suspect]
     Indication: HODGKIN^S DISEASE
     Dosage: 250MG PER DAY
     Dates: start: 20121204, end: 20121206

REACTIONS (2)
  - Pneumonitis [Recovered/Resolved]
  - Respiratory failure [Recovered/Resolved]
